FAERS Safety Report 25014807 (Version 1)
Quarter: 2025Q1

REPORT INFORMATION
  Report Type: Spontaneous
  Country: US (occurrence: US)
  Receive Date: 20250226
  Receipt Date: 20250226
  Transmission Date: 20250408
  Serious: No
  Sender: PFIZER
  Company Number: US-PFIZER INC-202500042906

PATIENT
  Age: 75 Year
  Sex: Female
  Weight: 75.3 kg

DRUGS (13)
  1. IBRANCE [Suspect]
     Active Substance: PALBOCICLIB
     Indication: Breast cancer female
     Route: 048
  2. ACETAMINOPHEN [Concomitant]
     Active Substance: ACETAMINOPHEN
  3. HYDROCORTISONE [Concomitant]
     Active Substance: HYDROCORTISONE
  4. LETROZOLE [Concomitant]
     Active Substance: LETROZOLE
  5. LETROZOLE [Concomitant]
     Active Substance: LETROZOLE
  6. LIDOCAINE [Concomitant]
     Active Substance: LIDOCAINE
  7. LOPERAMIDE [Concomitant]
     Active Substance: LOPERAMIDE
     Indication: Diarrhoea
  8. ONDANSETRON [Concomitant]
     Active Substance: ONDANSETRON
  9. PROCHLORPERAZINE [Concomitant]
     Active Substance: PROCHLORPERAZINE
  10. SENOKOT-S [Concomitant]
     Active Substance: DOCUSATE SODIUM\SENNOSIDES
  11. SPIRONOLACTONE [Concomitant]
     Active Substance: SPIRONOLACTONE
  12. TORSEMIDE [Concomitant]
     Active Substance: TORSEMIDE
  13. TRAMADOL [Concomitant]
     Active Substance: TRAMADOL

REACTIONS (3)
  - Neoplasm progression [Unknown]
  - Diarrhoea [Not Recovered/Not Resolved]
  - Taste disorder [Unknown]

NARRATIVE: CASE EVENT DATE: 20250201
